FAERS Safety Report 11533225 (Version 1)
Quarter: 2015Q3

REPORT INFORMATION
  Report Type: Spontaneous
  Country: PL (occurrence: PL)
  Receive Date: 20150921
  Receipt Date: 20150921
  Transmission Date: 20151125
  Serious: Yes (Other)
  Sender: FDA-Public Use
  Company Number: PHHY2015PL110650

PATIENT
  Age: 39 Year
  Sex: Female

DRUGS (2)
  1. DIAZEPAM. [Suspect]
     Active Substance: DIAZEPAM
     Indication: STIFF PERSON SYNDROME
     Dosage: 50 MG, UNK
     Route: 065
  2. DIAZEPAM. [Suspect]
     Active Substance: DIAZEPAM
     Dosage: 100 MG, UNK
     Route: 065

REACTIONS (6)
  - Tachyphylaxis [Unknown]
  - Drug ineffective [Unknown]
  - Disease recurrence [Unknown]
  - Stiff person syndrome [Unknown]
  - Withdrawal syndrome [Unknown]
  - Latent autoimmune diabetes in adults [Unknown]
